FAERS Safety Report 9568558 (Version 2)
Quarter: 2014Q1

REPORT INFORMATION
  Report Type: Spontaneous
  Country: US (occurrence: US)
  Receive Date: 20130930
  Receipt Date: 20140303
  Transmission Date: 20141002
  Serious: No
  Sender: FDA-Public Use
  Company Number: US-AMGEN-USASP2013062779

PATIENT
  Age: 62 Year
  Sex: Female
  Weight: 74.83 kg

DRUGS (18)
  1. ENBREL [Suspect]
     Indication: RHEUMATOID ARTHRITIS
     Dosage: 50 MG, QWK
     Route: 058
     Dates: start: 20130814, end: 20130825
  2. METHOTREXATE [Concomitant]
     Dosage: 2.5 MG, UNK
     Route: 048
  3. FOLIC ACID [Concomitant]
     Dosage: UNK
     Route: 048
  4. SYNTHROID [Concomitant]
     Dosage: 137 MUG, UNK
     Route: 048
  5. RANEXA [Concomitant]
     Dosage: 500 MG, UNK
     Route: 048
  6. IMDUR [Concomitant]
     Dosage: 30 MG, UNK
     Route: 048
  7. ZOLOFT [Concomitant]
     Dosage: 25 MG, UNK
     Route: 048
  8. LIPITOR [Concomitant]
     Dosage: 20 MG, UNK
     Route: 048
  9. ZETIA [Concomitant]
     Dosage: 10 MG, UNK
     Route: 048
  10. ATIVAN [Concomitant]
     Dosage: 1 MG, UNK
     Route: 048
  11. LIBRAX                             /00847101/ [Concomitant]
     Dosage: 5-2.5 MG, UNK
     Route: 048
  12. VITAMIN D                          /00107901/ [Concomitant]
     Dosage: 400 UNIT, UNK
     Route: 048
  13. ACIDOPHILUS [Concomitant]
     Dosage: UNK
  14. PROBIOTIC                          /06395501/ [Concomitant]
     Dosage: UNK
     Route: 048
  15. POLYETHYLENE GLYCOL [Concomitant]
     Dosage: 3350 NF
     Route: 048
  16. VITAMIN D3 [Concomitant]
     Dosage: UNK
  17. PREVACID [Concomitant]
     Dosage: UNK
  18. ZELTA [Concomitant]
     Dosage: UNK

REACTIONS (3)
  - Fatigue [Recovered/Resolved]
  - Influenza like illness [Recovered/Resolved]
  - Sinusitis [Recovered/Resolved]
